FAERS Safety Report 13486364 (Version 1)
Quarter: 2017Q2

REPORT INFORMATION
  Report Type: Spontaneous
  Country: CN (occurrence: CN)
  Receive Date: 20170426
  Receipt Date: 20170426
  Transmission Date: 20170830
  Serious: Yes (Other)
  Sender: FDA-Public Use
  Company Number: CN-BAXTER-2017BAX017530

PATIENT
  Age: 45 Year
  Sex: Female
  Weight: 42 kg

DRUGS (2)
  1. 20% MANNITOL INJECTION [Suspect]
     Active Substance: MANNITOL
     Indication: HEADACHE
     Route: 042
     Dates: start: 20161209, end: 20161209
  2. 20% MANNITOL INJECTION [Suspect]
     Active Substance: MANNITOL
     Indication: DISCOMFORT

REACTIONS (1)
  - Drug hypersensitivity [Recovered/Resolved]

NARRATIVE: CASE EVENT DATE: 20161209
